FAERS Safety Report 16620532 (Version 2)
Quarter: 2020Q1

REPORT INFORMATION
  Report Type: Spontaneous
  Country: US (occurrence: US)
  Receive Date: 20190723
  Receipt Date: 20200309
  Transmission Date: 20200409
  Serious: Yes (Hospitalization)
  Sender: FDA-Public Use
  Company Number: US-PFIZER INC-2019311882

PATIENT
  Age: 47 Year
  Sex: Female

DRUGS (1)
  1. LORBRENA [Suspect]
     Active Substance: LORLATINIB
     Indication: LUNG NEOPLASM MALIGNANT
     Dosage: 100 MG, UNK

REACTIONS (4)
  - Speech disorder [Unknown]
  - Coma [Unknown]
  - Loss of personal independence in daily activities [Unknown]
  - Neoplasm progression [Unknown]
